FAERS Safety Report 4607172-4 (Version None)
Quarter: 2005Q1

REPORT INFORMATION
  Report Type: 
  Country: None (occurrence: None)
  Receive Date: 20050311
  Receipt Date: 20050311
  Transmission Date: 20050727
  Serious: Yes (Hospitalization, Other)
  Sender: FDA-Public Use
  Company Number: None

PATIENT
  Age: 74 Year
  Sex: Female
  Weight: 61 kg

DRUGS (11)
  1. TEQUIN [Suspect]
     Indication: CATHETER SEPSIS
     Dosage: 400 MG IV   ; 200 MG IV QD
     Route: 042
     Dates: start: 20040621, end: 20040706
  2. VANCOMYCIN [Concomitant]
  3. GARAMYCIN [Concomitant]
  4. NEPHROCAP [Concomitant]
  5. PEPCID [Concomitant]
  6. REGLAN [Concomitant]
  7. SEROQUEL [Concomitant]
  8. VERAPAMIL [Concomitant]
  9. PROVENTIL [Concomitant]
  10. VASOTEC [Concomitant]
  11. HYPERTONIC GLUCOSE [Concomitant]

REACTIONS (1)
  - HYPOGLYCAEMIA [None]
